FAERS Safety Report 5358733-9 (Version None)
Quarter: 2007Q2

REPORT INFORMATION
  Report Type: 
  Country: None (occurrence: None)
  Receive Date: 20070615
  Receipt Date: 20070604
  Transmission Date: 20071010
  Serious: Yes (Hospitalization)
  Sender: FDA-Public Use
  Company Number: FR-AMGEN-UK227647

PATIENT
  Sex: Male

DRUGS (4)
  1. NEULASTA [Suspect]
     Indication: CHEMOTHERAPY
     Route: 058
     Dates: start: 20060502
  2. FLUOROURACIL [Suspect]
     Route: 042
     Dates: start: 20060209, end: 20060501
  3. CISPLATIN [Suspect]
     Route: 042
     Dates: start: 20060209, end: 20060521
  4. ARANESP [Concomitant]
     Route: 058
     Dates: start: 20060309, end: 20060526

REACTIONS (2)
  - NEUTROPENIA [None]
  - THROMBOCYTOPENIA [None]
